FAERS Safety Report 8095045-7 (Version None)
Quarter: 2012Q1

REPORT INFORMATION
  Report Type: 
  Country: None (occurrence: None)
  Receive Date: 20120131
  Receipt Date: 20120131
  Transmission Date: 20120608
  Serious: Yes (Other)
  Sender: FDA-Public Use
  Company Number: None

PATIENT
  Age: 61 Year
  Sex: Male
  Weight: 77.11 kg

DRUGS (7)
  1. DEPLIN [Concomitant]
  2. RAPAFLO [Suspect]
     Indication: PROSTATOMEGALY
     Dosage: 8 MG
     Route: 048
     Dates: start: 20110613, end: 20110614
  3. MELOXICAM [Concomitant]
  4. VIAGRA [Concomitant]
  5. WELLBUTRIN [Concomitant]
  6. PANTOPRAZOLE [Concomitant]
  7. LIPITOR [Concomitant]

REACTIONS (1)
  - DYSPNOEA [None]
